FAERS Safety Report 5675254-4 (Version None)
Quarter: 2008Q1

REPORT INFORMATION
  Report Type: 
  Country: None (occurrence: None)
  Receive Date: 20080320
  Receipt Date: 20080310
  Transmission Date: 20080703
  Serious: Yes (Hospitalization)
  Sender: FDA-Public Use
  Company Number: US-ELI_LILLY_AND_COMPANY-US200802002557

PATIENT
  Sex: Female
  Weight: 80.726 kg

DRUGS (17)
  1. FORTEO [Suspect]
     Indication: OSTEOPOROSIS
     Dosage: 20 UG, DAILY (1/D)
     Route: 058
     Dates: start: 20070101
  2. FORTEO [Suspect]
     Dosage: UNK, UNK
     Dates: start: 20080101
  3. EVISTA [Suspect]
  4. ALBUTEROL [Concomitant]
     Dosage: UNK, DAILY (1/D)
  5. ALLEGRA [Concomitant]
     Dosage: 60 MG, AS NEEDED
     Route: 048
  6. DOCUSATE [Concomitant]
     Indication: CONSTIPATION
     Dosage: 100 MG, AS NEEDED
     Route: 048
  7. LORATADINE [Concomitant]
     Dosage: 10 MG, AS NEEDED
     Route: 048
  8. LOVASTATIN [Concomitant]
     Dosage: 40 MG, DAILY (1/D)
     Route: 048
  9. OMEGA-3 FATTY ACIDS [Concomitant]
     Dosage: 1 MG, 3/D
     Route: 048
  10. METOCLOPRAMIDE [Concomitant]
     Dosage: 10 MG, AS NEEDED
     Route: 048
  11. OMEPRAZOLE [Concomitant]
     Dosage: 20 MG, DAILY (1/D)
     Route: 048
  12. OS-CAL [Concomitant]
     Dosage: UNK, 2/D
     Route: 048
  13. PULMICORT [Concomitant]
     Dosage: UNK, 2/D
     Route: 055
  14. SEREVENT [Concomitant]
     Dosage: 50 UG, 2/D
     Route: 055
  15. SINGULAIR [Concomitant]
     Dosage: 10 MG, EACH EVENING
     Route: 048
  16. SPIRIVA [Concomitant]
     Dosage: 18 UG, DAILY (1/D)
     Route: 055
  17. SPIRONOLACTONE [Concomitant]
     Dosage: 25 MG, DAILY (1/D)
     Route: 048

REACTIONS (5)
  - DYSPHAGIA [None]
  - INCORRECT DOSE ADMINISTERED [None]
  - MUSCLE SPASMS [None]
  - SMALL INTESTINE CARCINOMA [None]
  - WOUND INFECTION [None]
